FAERS Safety Report 18642654 (Version 3)
Quarter: 2021Q4

REPORT INFORMATION
  Report Type: Spontaneous
  Country: CA (occurrence: CA)
  Receive Date: 20201221
  Receipt Date: 20211124
  Transmission Date: 20220303
  Serious: Yes (Other)
  Sender: FDA-Public Use
  Company Number: CA-SAMSUNG BIOEPIS-SB-2020-37455

PATIENT
  Age: 74 Year
  Sex: Female

DRUGS (1)
  1. INFLIXIMAB [Suspect]
     Active Substance: INFLIXIMAB
     Indication: Crohn^s disease
     Route: 042

REACTIONS (9)
  - Faecal calprotectin increased [Unknown]
  - Gastrointestinal inflammation [Unknown]
  - Dizziness [Unknown]
  - Malaise [Unknown]
  - Vomiting [Unknown]
  - Condition aggravated [Unknown]
  - Enteritis [Unknown]
  - Drug level decreased [Unknown]
  - Inappropriate schedule of product administration [Unknown]
